FAERS Safety Report 8192614-0 (Version None)
Quarter: 2012Q1

REPORT INFORMATION
  Report Type: 
  Country: None (occurrence: None)
  Receive Date: 20120308
  Receipt Date: 20120229
  Transmission Date: 20120608
  Serious: Yes (Other)
  Sender: FDA-Public Use
  Company Number: US-US-EMD SERONO, INC.-7116396

PATIENT
  Sex: Female

DRUGS (2)
  1. REBIF [Suspect]
     Indication: PRODUCT USED FOR UNKNOWN INDICATION
     Route: 058
     Dates: start: 20060608, end: 20111201
  2. REBIF [Suspect]
     Route: 058
     Dates: start: 20120229

REACTIONS (8)
  - BLADDER DISORDER [None]
  - FATIGUE [None]
  - MUSCLE ATROPHY [None]
  - OEDEMA PERIPHERAL [None]
  - LIVER DISORDER [None]
  - PANCREATIC DISORDER [None]
  - DECREASED APPETITE [None]
  - WEIGHT DECREASED [None]
